FAERS Safety Report 16730118 (Version 1)
Quarter: 2019Q3

REPORT INFORMATION
  Report Type: Spontaneous
  Country: US (occurrence: US)
  Receive Date: 20190822
  Receipt Date: 20190822
  Transmission Date: 20191005
  Serious: No
  Sender: FDA-Public Use
  Company Number: US-PACIRA-201800122

PATIENT
  Age: 46 Year
  Sex: Female
  Weight: 61 kg

DRUGS (3)
  1. EPINEPHRINE. [Concomitant]
     Active Substance: EPINEPHRINE
     Indication: POSTOPERATIVE ANALGESIA
     Dosage: 20 ML OF 0.25% MARCAINE AND 1% EPI USED AT THE START OF SURGERY
  2. EXPAREL [Suspect]
     Active Substance: BUPIVACAINE
     Indication: POSTOPERATIVE ANALGESIA
     Dosage: 20 ML, SINGLE, VIAL EXPANDED WITH SOMETHING, FREQUENCY : SINGLE
     Dates: start: 20181017, end: 20181017
  3. MARCAINE [Concomitant]
     Active Substance: BUPIVACAINE HYDROCHLORIDE
     Indication: POSTOPERATIVE ANALGESIA
     Dosage: 20 ML 0.25% MARCAINE AND 1% EPI USED AT THE START OF SURGERY

REACTIONS (1)
  - Hypoaesthesia [Not Recovered/Not Resolved]

NARRATIVE: CASE EVENT DATE: 20181017
